FAERS Safety Report 15705737 (Version 7)
Quarter: 2022Q4

REPORT INFORMATION
  Report Type: Spontaneous
  Country: PT (occurrence: PT)
  Receive Date: 20181210
  Receipt Date: 20221020
  Transmission Date: 20230113
  Serious: Yes (Life-Threatening, Hospitalization)
  Sender: FDA-Public Use
  Company Number: PT-ALTER-2018-00319

PATIENT
  Age: 47 Year
  Sex: Female

DRUGS (6)
  1. XYZAL [Suspect]
     Active Substance: LEVOCETIRIZINE DIHYDROCHLORIDE
     Indication: Rash pruritic
     Dosage: UNK
  2. CEFTRIAXONE [Suspect]
     Active Substance: CEFTRIAXONE
     Indication: Evidence based treatment
     Dosage: UNK
  3. DEFLAZACORT [Suspect]
     Active Substance: DEFLAZACORT
     Indication: Rash pruritic
     Dosage: UNK
  4. ETORICOXIB [Suspect]
     Active Substance: ETORICOXIB
     Indication: Arthralgia
     Dosage: 2 MG, 2X/DAY (BID)
  5. ETORICOXIB [Suspect]
     Active Substance: ETORICOXIB
     Indication: Pain in extremity
  6. ACEMETACIN [Suspect]
     Active Substance: ACEMETACIN
     Indication: Arthralgia
     Dosage: UNK

REACTIONS (1)
  - Toxic epidermal necrolysis [Unknown]
